FAERS Safety Report 13082148 (Version 1)
Quarter: 2017Q1

REPORT INFORMATION
  Report Type: Spontaneous
  Country: BE (occurrence: BE)
  Receive Date: 20170103
  Receipt Date: 20170103
  Transmission Date: 20170428
  Serious: Yes (Life-Threatening, Hospitalization)
  Sender: FDA-Public Use
  Company Number: BE-BAYER-2016-243004

PATIENT
  Age: 57 Year
  Sex: Female

DRUGS (5)
  1. L-THYROXINE [Concomitant]
     Active Substance: LEVOTHYROXINE
     Dosage: DAILY DOSE 50 ?G
     Route: 048
  2. L-THYROXINE [Concomitant]
     Active Substance: LEVOTHYROXINE
     Dosage: DAILY DOSE 50 ?G
     Route: 048
  3. FURADANTINE [Suspect]
     Active Substance: NITROFURANTOIN
     Indication: URINARY TRACT INFECTION
     Dosage: UNK UNK, BID
     Route: 048
     Dates: start: 20141220, end: 20141225
  4. CIPROXINE 500 MG [Suspect]
     Active Substance: CIPROFLOXACIN
     Indication: URINARY TRACT INFECTION
     Dosage: 500 MG, BID
     Route: 048
     Dates: start: 20150111, end: 20150116
  5. L-THYROXINE [Concomitant]
     Active Substance: LEVOTHYROXINE
     Dosage: DAILY DOSE 32.5 ?G
     Route: 048

REACTIONS (2)
  - Acute kidney injury [Recovered/Resolved with Sequelae]
  - Renal tubular necrosis [None]

NARRATIVE: CASE EVENT DATE: 20150111
